FAERS Safety Report 5520251-2 (Version None)
Quarter: 2007Q4

REPORT INFORMATION
  Report Type: 
  Country: None (occurrence: None)
  Receive Date: 20071117
  Receipt Date: 20071023
  Transmission Date: 20080405
  Serious: No
  Sender: FDA-Public Use
  Company Number: PHNU2007DE03457

PATIENT
  Sex: Male

DRUGS (1)
  1. VOLTAREN [Suspect]
     Route: 061

REACTIONS (1)
  - HYPERSENSITIVITY [None]
